FAERS Safety Report 20764298 (Version 1)
Quarter: 2022Q2

REPORT INFORMATION
  Report Type: Spontaneous
  Country: US (occurrence: US)
  Receive Date: 20220428
  Receipt Date: 20220428
  Transmission Date: 20220721
  Serious: No
  Sender: FDA-Public Use
  Company Number: US-GLAUKOS-AVE-2021-0179-AE

PATIENT

DRUGS (3)
  1. PHOTREXA VISCOUS [Suspect]
     Active Substance: RIBOFLAVIN 5^-PHOSPHATE SODIUM
     Indication: Product used for unknown indication
     Route: 047
     Dates: start: 20210621, end: 20210621
  2. PHOTREXA [Suspect]
     Active Substance: RIBOFLAVIN 5^-PHOSPHATE SODIUM
     Indication: Product used for unknown indication
     Route: 047
     Dates: start: 20210621, end: 20210621
  3. DEVICE [Suspect]
     Active Substance: DEVICE
     Indication: Product used for unknown indication
     Route: 047
     Dates: start: 20210621, end: 20210621

REACTIONS (5)
  - Inappropriate schedule of product administration [Unknown]
  - Device issue [Recovered/Resolved]
  - Device use issue [Recovered/Resolved]
  - Therapy cessation [Recovered/Resolved]
  - No adverse event [Unknown]

NARRATIVE: CASE EVENT DATE: 20210621
